FAERS Safety Report 11925651 (Version 1)
Quarter: 2016Q1

REPORT INFORMATION
  Report Type: Spontaneous
  Country: KR (occurrence: KR)
  Receive Date: 20160118
  Receipt Date: 20160118
  Transmission Date: 20160526
  Serious: Yes (Hospitalization)
  Sender: FDA-Public Use
  Company Number: KR-AMGEN-KORCT2016005121

PATIENT
  Age: 42 Year
  Sex: Female
  Weight: 86.3 kg

DRUGS (32)
  1. G-LASTA [Suspect]
     Active Substance: PEGFILGRASTIM
     Indication: FEBRILE NEUTROPENIA
     Dosage: 6 MG, 1X/3WEEKS
     Route: 058
     Dates: start: 20151011
  2. FILGRASTIM [Concomitant]
     Active Substance: FILGRASTIM
     Dosage: 150 MCG, UNK
     Route: 058
     Dates: start: 20151016, end: 20151017
  3. DOCETAXEL. [Concomitant]
     Active Substance: DOCETAXEL
     Dosage: 147 MG, UNK
     Route: 042
     Dates: start: 20151031, end: 20151031
  4. CYCLOPHOSPHAMIDE. [Concomitant]
     Active Substance: CYCLOPHOSPHAMIDE
     Dosage: 980 MG, UNK
     Route: 042
     Dates: start: 20151010, end: 20151010
  5. CEFOBACTAM [Concomitant]
     Active Substance: CEFOPERAZONE SODIUM\SULBACTAM SODIUM
     Dosage: 2 G, UNK
     Route: 042
     Dates: start: 20151218, end: 20151219
  6. FILGRASTIM [Concomitant]
     Active Substance: FILGRASTIM
     Dosage: 150 MCG, UNK
     Route: 058
     Dates: start: 20151106, end: 20151108
  7. FILGRASTIM [Concomitant]
     Active Substance: FILGRASTIM
     Dosage: 150 MCG, UNK
     Route: 058
     Dates: start: 20151127, end: 20151128
  8. DOCETAXEL. [Concomitant]
     Active Substance: DOCETAXEL
     Dosage: 147 MG, UNK
     Route: 042
     Dates: start: 20151010, end: 20151010
  9. DOXORUBICIN [Concomitant]
     Active Substance: DOXORUBICIN
     Dosage: 98 MG, UNK
     Route: 042
     Dates: start: 20151010, end: 20151010
  10. DOXORUBICIN [Concomitant]
     Active Substance: DOXORUBICIN
     Dosage: 98 MG, UNK
     Route: 042
     Dates: start: 20151031, end: 20151031
  11. CYCLOPHOSPHAMIDE. [Concomitant]
     Active Substance: CYCLOPHOSPHAMIDE
     Dosage: 980 MG, UNK
     Route: 042
     Dates: start: 20151212, end: 20151212
  12. CYCLOPHOSPHAMIDE. [Concomitant]
     Active Substance: CYCLOPHOSPHAMIDE
     Dosage: 980 MG, UNK
     Route: 042
     Dates: start: 20160102, end: 20160102
  13. CEFOBACTAM [Concomitant]
     Active Substance: CEFOPERAZONE SODIUM\SULBACTAM SODIUM
     Dosage: 2 G, UNK
     Route: 042
     Dates: start: 20151016, end: 20151017
  14. CEFOBACTAM [Concomitant]
     Active Substance: CEFOPERAZONE SODIUM\SULBACTAM SODIUM
     Dosage: 2 G, UNK
     Route: 042
     Dates: start: 20151106, end: 20151108
  15. FILGRASTIM [Concomitant]
     Active Substance: FILGRASTIM
     Dosage: 150 MCG, UNK
     Route: 058
     Dates: start: 20151218, end: 20151219
  16. DOCETAXEL. [Concomitant]
     Active Substance: DOCETAXEL
     Dosage: 147 MG, UNK
     Route: 042
     Dates: start: 20151121, end: 20151121
  17. CYCLOPHOSPHAMIDE. [Concomitant]
     Active Substance: CYCLOPHOSPHAMIDE
     Dosage: 980 MG, UNK
     Route: 042
     Dates: start: 20151031, end: 20151031
  18. G-LASTA [Suspect]
     Active Substance: PEGFILGRASTIM
     Dosage: 6 MG, 1X/3WEEKS
     Route: 058
     Dates: start: 20151213
  19. DOXORUBICIN [Concomitant]
     Active Substance: DOXORUBICIN
     Dosage: 98 MG, UNK
     Route: 042
     Dates: start: 20151121, end: 20151121
  20. CEFOBACTAM [Concomitant]
     Active Substance: CEFOPERAZONE SODIUM\SULBACTAM SODIUM
     Dosage: 2 G, UNK
     Route: 042
     Dates: start: 20151127, end: 20151128
  21. TOBRAMYCIN. [Concomitant]
     Active Substance: TOBRAMYCIN
     Dosage: 200 MG, UNK
     Route: 042
     Dates: start: 20151016, end: 20151017
  22. TOBRAMYCIN. [Concomitant]
     Active Substance: TOBRAMYCIN
     Dosage: 200 MG, UNK
     Route: 042
     Dates: start: 20151218, end: 20151219
  23. G-LASTA [Suspect]
     Active Substance: PEGFILGRASTIM
     Dosage: 6 MG, 1X/3WEEKS
     Route: 058
     Dates: start: 20151101
  24. G-LASTA [Suspect]
     Active Substance: PEGFILGRASTIM
     Dosage: 6 MG, 1X/3WEEKS
     Route: 058
     Dates: start: 20151122
  25. G-LASTA [Suspect]
     Active Substance: PEGFILGRASTIM
     Dosage: 6 MG, 1X/3WEEKS
     Route: 058
     Dates: start: 20160103
  26. DOCETAXEL. [Concomitant]
     Active Substance: DOCETAXEL
     Dosage: 147 MG, UNK
     Route: 042
     Dates: start: 20160102, end: 20160102
  27. TOBRAMYCIN. [Concomitant]
     Active Substance: TOBRAMYCIN
     Dosage: 200 MG, UNK
     Route: 042
     Dates: start: 20151106, end: 20151108
  28. DOXORUBICIN [Concomitant]
     Active Substance: DOXORUBICIN
     Dosage: 98 MG, UNK
     Route: 042
     Dates: start: 20160102, end: 20160102
  29. DOCETAXEL. [Concomitant]
     Active Substance: DOCETAXEL
     Dosage: 147 MG, UNK
     Route: 042
     Dates: start: 20151212, end: 20151212
  30. DOXORUBICIN [Concomitant]
     Active Substance: DOXORUBICIN
     Dosage: 98 MG, UNK
     Route: 042
     Dates: start: 20151212, end: 20151212
  31. CYCLOPHOSPHAMIDE. [Concomitant]
     Active Substance: CYCLOPHOSPHAMIDE
     Dosage: 980 MG, UNK
     Route: 042
     Dates: start: 20151121, end: 20151121
  32. TOBRAMYCIN. [Concomitant]
     Active Substance: TOBRAMYCIN
     Dosage: 200 MG, UNK
     Route: 042
     Dates: start: 20151127, end: 20151128

REACTIONS (1)
  - Neutropenia [Recovered/Resolved]

NARRATIVE: CASE EVENT DATE: 20160108
